FAERS Safety Report 4524793-8 (Version None)
Quarter: 2004Q4

REPORT INFORMATION
  Report Type: 
  Country: None (occurrence: None)
  Receive Date: 20041207
  Receipt Date: 20021120
  Transmission Date: 20050328
  Serious: Yes (Hospitalization)
  Sender: FDA-Public Use
  Company Number: MEDI-0002495

PATIENT
  Age: 64 Year

DRUGS (2)
  1. ETHYOL [Suspect]
     Dosage: SUBCUTANEOUS
     Route: 058
  2. RADIATION THERAPY [Concomitant]

REACTIONS (8)
  - ANOREXIA [None]
  - DEHYDRATION [None]
  - DYSPHAGIA [None]
  - MALNUTRITION [None]
  - NAUSEA [None]
  - PHARYNGOLARYNGEAL PAIN [None]
  - SKIN DESQUAMATION [None]
  - TREATMENT NONCOMPLIANCE [None]
